FAERS Safety Report 4519400-4 (Version None)
Quarter: 2004Q4

REPORT INFORMATION
  Report Type: 
  Country: None (occurrence: None)
  Receive Date: 20041206
  Receipt Date: 20041124
  Transmission Date: 20050328
  Serious: Yes (Other)
  Sender: FDA-Public Use
  Company Number: 2004097825

PATIENT
  Sex: Male
  Weight: 81.6475 kg

DRUGS (1)
  1. VISINE L.R. [Suspect]
     Indication: EYE REDNESS
     Dosage: 1 DROP IN EACH EYE

REACTIONS (3)
  - CONDITION AGGRAVATED [None]
  - DRUG DEPENDENCE [None]
  - EYE REDNESS [None]
